FAERS Safety Report 9338896 (Version 3)
Quarter: 2014Q3

REPORT INFORMATION
  Report Type: Report from Study
  Country: FR (occurrence: FR)
  Receive Date: 20130610
  Receipt Date: 20140910
  Transmission Date: 20150326
  Serious: No
  Sender: FDA-Public Use
  Company Number: PHHY2013FR058435

PATIENT

DRUGS (2)
  1. CORTICOSTEROID NOS [Concomitant]
     Active Substance: CORTICOSTEROID NOS
     Route: 045
  2. ILARIS [Suspect]
     Active Substance: CANAKINUMAB

REACTIONS (4)
  - Sinus headache [Recovered/Resolved]
  - Sinusitis [Unknown]
  - Headache [Recovered/Resolved]
  - Gingival pain [Recovered/Resolved]

NARRATIVE: CASE EVENT DATE: 201008
